FAERS Safety Report 19890052 (Version 4)
Quarter: 2021Q4

REPORT INFORMATION
  Report Type: Spontaneous
  Country: MX (occurrence: MX)
  Receive Date: 20210928
  Receipt Date: 20211124
  Transmission Date: 20220303
  Serious: Yes (Other)
  Sender: FDA-Public Use
  Company Number: MX-ALVOGEN-2021-ALVOGEN-117584

PATIENT
  Age: 71 Year
  Sex: Female
  Weight: 75 kg

DRUGS (7)
  1. TENORETIC [Suspect]
     Active Substance: ATENOLOL\CHLORTHALIDONE
     Indication: Ill-defined disorder
     Dosage: 50 / 12.5 MG 1.25 DF (DOSAGE FORM)
     Route: 048
     Dates: start: 1990
  2. VALSARTAN [Suspect]
     Active Substance: VALSARTAN
     Indication: Blood pressure measurement
     Dosage: 160.0MG UNKNOWN,1.5 DF
     Route: 065
     Dates: start: 20210716
  3. HYDROCHLOROTHIAZIDE\VALSARTAN [Suspect]
     Active Substance: HYDROCHLOROTHIAZIDE\VALSARTAN
     Indication: Blood pressure measurement
     Route: 065
  4. AMLODIPINE BESYLATE\VALSARTAN [Suspect]
     Active Substance: AMLODIPINE BESYLATE\VALSARTAN
     Indication: Blood pressure measurement
     Dates: start: 20210725
  5. HYDROCHLOROTHIAZIDE\VALSARTAN [Concomitant]
     Active Substance: HYDROCHLOROTHIAZIDE\VALSARTAN
     Indication: Blood pressure measurement
     Dosage: UNKNOWN2.0DF UNKNOWN
     Route: 048
     Dates: start: 1990, end: 202107
  6. METFORMIN HYDROCHLORIDE [Concomitant]
     Active Substance: METFORMIN HYDROCHLORIDE
     Indication: Blood glucose
  7. METFORMIN HYDROCHLORIDE/SITAGLIPTIN PHOSPHATE MONOHYDR [Concomitant]
     Indication: Blood glucose

REACTIONS (9)
  - Blood pressure increased [Recovering/Resolving]
  - Peripheral swelling [Recovering/Resolving]
  - Product use issue [Unknown]
  - Off label use [Unknown]
  - Carpal tunnel syndrome [Recovered/Resolved]
  - Arthropathy [Recovered/Resolved]
  - Diarrhoea [Recovered/Resolved]
  - Irritable bowel syndrome [Recovered/Resolved]
  - Blood pressure inadequately controlled [Not Recovered/Not Resolved]

NARRATIVE: CASE EVENT DATE: 20210626
